FAERS Safety Report 4811129-8 (Version None)
Quarter: 2005Q4

REPORT INFORMATION
  Report Type: 
  Country: None (occurrence: None)
  Receive Date: 20051027
  Receipt Date: 20051025
  Transmission Date: 20060501
  Serious: Yes (Death)
  Sender: FDA-Public Use
  Company Number: FRPFM-C-20050509

PATIENT
  Age: 75 Year
  Sex: Male

DRUGS (5)
  1. NAVELBINE [Suspect]
     Indication: MULTIPLE MYELOMA
     Dosage: 25MGM2 CYCLIC
     Route: 042
     Dates: start: 19980908, end: 19980911
  2. DEXAMETHASONE [Suspect]
     Indication: MULTIPLE MYELOMA
     Dosage: 40MGD CYCLIC
     Route: 048
     Dates: start: 19980908, end: 19980911
  3. RANITIDINE [Concomitant]
     Route: 048
     Dates: start: 19980908, end: 19980912
  4. DIGOXIN [Concomitant]
     Dates: start: 19980910
  5. AREDIA [Concomitant]
     Route: 042
     Dates: start: 19980908

REACTIONS (2)
  - AGRANULOCYTOSIS [None]
  - CARDIAC FAILURE [None]
